FAERS Safety Report 4407488-0 (Version None)
Quarter: 2004Q3

REPORT INFORMATION
  Report Type: 
  Country: None (occurrence: None)
  Receive Date: 20040721
  Receipt Date: 20040707
  Transmission Date: 20050211
  Serious: Yes (Life-Threatening, Hospitalization)
  Sender: FDA-Public Use
  Company Number: 205758

PATIENT
  Age: 48 Year
  Sex: Female
  Weight: 48 kg

DRUGS (7)
  1. RITUXIMAB (RITUXIMAB) CONC FOR SOLUTION FOR INFUSION [Suspect]
     Indication: NON-HODGKIN'S LYMPHOMA
     Dosage: 375 MG/M2, X6, INTRAVENOUS
     Route: 042
     Dates: start: 19990920, end: 20000119
  2. CYCLOPHOSPHAMIDE [Suspect]
     Indication: NON-HODGKIN'S LYMPHOMA
     Dosage: 750 MG, X6,INTRAVENOUS
     Route: 042
     Dates: start: 19990922, end: 20000121
  3. DOXORUBICIN HYDROCHLORIDE [Suspect]
     Indication: NON-HODGKIN'S LYMPHOMA
     Dosage: 50 MG, X6, INTRAVENOUS
     Route: 042
     Dates: start: 19990922, end: 20000121
  4. VINCRISTINE [Suspect]
     Indication: NON-HODGKIN'S LYMPHOMA
     Dosage: 1.4 MG, X6, INTRAVENOUS
     Route: 042
     Dates: start: 19990922, end: 20000121
  5. PREDNISONE [Suspect]
     Indication: NON-HODGKIN'S LYMPHOMA
     Dosage: 100 MG, ORAL
     Route: 048
     Dates: start: 19990922, end: 20000121
  6. IBUPROFEN [Concomitant]
  7. CHLORPHENIRAMINE MALEATE [Concomitant]

REACTIONS (5)
  - ALOPECIA [None]
  - LUNG ADENOCARCINOMA [None]
  - NAUSEA [None]
  - NEUROPATHY PERIPHERAL [None]
  - VOMITING [None]
